FAERS Safety Report 13860388 (Version 2)
Quarter: 2017Q3

REPORT INFORMATION
  Report Type: Spontaneous
  Country: US (occurrence: US)
  Receive Date: 20170811
  Receipt Date: 20170905
  Transmission Date: 20171127
  Serious: No
  Sender: FDA-Public Use
  Company Number: US-GLAXOSMITHKLINE-US2017124400

PATIENT
  Age: 36 Year
  Sex: Female
  Weight: 44 kg

DRUGS (6)
  1. IBUPROFEN. [Suspect]
     Active Substance: IBUPROFEN
     Indication: PRODUCT USED FOR UNKNOWN INDICATION
  2. LEFLUNOMIDE. [Concomitant]
     Active Substance: LEFLUNOMIDE
  3. BENLYSTA [Suspect]
     Active Substance: BELIMUMAB
     Indication: SYSTEMIC LUPUS ERYTHEMATOSUS
     Dosage: 400 MG, UNK
     Route: 042
     Dates: start: 20141016, end: 201708
  4. AMLODIPINE [Concomitant]
     Active Substance: AMLODIPINE BESYLATE
  5. NAPROSYNE TABLET [Suspect]
     Active Substance: NAPROXEN
     Indication: PRODUCT USED FOR UNKNOWN INDICATION
  6. SOLU-MEDROL [Concomitant]
     Active Substance: METHYLPREDNISOLONE SODIUM SUCCINATE

REACTIONS (10)
  - Rash maculo-papular [Recovered/Resolved]
  - Gastric disorder [Unknown]
  - Malaise [Recovered/Resolved]
  - Arthralgia [Recovered/Resolved]
  - Drug hypersensitivity [Unknown]
  - Pruritus [Unknown]
  - Rash [Recovered/Resolved]
  - Abdominal pain [Recovered/Resolved]
  - Dyspnoea [Recovered/Resolved]
  - Arthropathy [Recovered/Resolved]

NARRATIVE: CASE EVENT DATE: 20170808
